FAERS Safety Report 6076690-7 (Version None)
Quarter: 2009Q1

REPORT INFORMATION
  Report Type: 
  Country: None (occurrence: None)
  Receive Date: 20090213
  Receipt Date: 20090204
  Transmission Date: 20090719
  Serious: Yes (Other)
  Sender: FDA-Public Use
  Company Number: PHHY2009SE04082

PATIENT
  Sex: Female

DRUGS (6)
  1. TEGRETOL [Suspect]
  2. CITALOPRAM HYDROBROMIDE [Concomitant]
  3. PREDNISOLONE [Concomitant]
  4. DIAZEPAM [Concomitant]
  5. MORFIN [Concomitant]
  6. IKTORIVIL [Concomitant]

REACTIONS (1)
  - AMNESIA [None]
